FAERS Safety Report 13675235 (Version 3)
Quarter: 2021Q2

REPORT INFORMATION
  Report Type: Other
  Country: CA (occurrence: CA)
  Receive Date: 20170621
  Receipt Date: 20210407
  Transmission Date: 20210716
  Serious: Yes (Hospitalization, Other)
  Sender: FDA-Public Use
  Company Number: CA-APOTEX-2017AP013056

PATIENT
  Age: 70 Year
  Sex: Female

DRUGS (23)
  1. XYREM [Suspect]
     Active Substance: SODIUM OXYBATE
     Dosage: 6 GRAM
     Route: 048
  2. XYREM [Suspect]
     Active Substance: SODIUM OXYBATE
     Dosage: 3.5 GRAM, THERAPY DURATION ?105 UNIT UNKNOWN
     Route: 048
  3. BISOPROLOL [Concomitant]
     Active Substance: BISOPROLOL
     Indication: PRODUCT USED FOR UNKNOWN INDICATION
     Dosage: 10 MILLIGRAM
     Route: 065
  4. XYREM [Suspect]
     Active Substance: SODIUM OXYBATE
     Dosage: 3 GRAM
     Route: 048
  5. XYREM [Suspect]
     Active Substance: SODIUM OXYBATE
     Dosage: 3.75 GRAM, THERAPY DURATION 231 UNIT UNKNOWN
     Route: 048
  6. PROZAC [Concomitant]
     Active Substance: FLUOXETINE HYDROCHLORIDE
     Indication: CATAPLEXY
     Route: 065
  7. XYREM [Suspect]
     Active Substance: SODIUM OXYBATE
     Dosage: 3.75 GRAM, THERAPY DURATION ?1 UNIT UNKNOWN
     Route: 048
  8. XYREM [Suspect]
     Active Substance: SODIUM OXYBATE
     Indication: NARCOLEPSY
     Dosage: 3 G, BID
     Route: 048
  9. XYREM [Suspect]
     Active Substance: SODIUM OXYBATE
     Dosage: 2.25 G, BID
     Route: 048
  10. XYREM [Suspect]
     Active Substance: SODIUM OXYBATE
     Dosage: 3 MILLIGRAM
     Route: 048
  11. ALERTEC [Concomitant]
     Active Substance: MODAFINIL
     Indication: SOMNOLENCE
     Dosage: 200 MILLIGRAM
     Route: 065
  12. ASCORBIC ACID. [Concomitant]
     Active Substance: ASCORBIC ACID
     Indication: PRODUCT USED FOR UNKNOWN INDICATION
     Dosage: 500 MILLIGRAM
     Route: 065
  13. MODAFINIL. [Suspect]
     Active Substance: MODAFINIL
     Indication: PRODUCT USED FOR UNKNOWN INDICATION
     Dosage: UNK
     Route: 065
  14. XYREM [Suspect]
     Active Substance: SODIUM OXYBATE
     Indication: CATAPLEXY
     Dosage: 3.75 G, BID
     Route: 048
  15. XYREM [Suspect]
     Active Substance: SODIUM OXYBATE
     Dosage: 2.25 GRAM
     Route: 048
  16. XYREM [Suspect]
     Active Substance: SODIUM OXYBATE
     Dosage: 3 MILLIGRAM
     Route: 048
  17. ASAPHEN [Concomitant]
     Active Substance: ASPIRIN
     Indication: PRODUCT USED FOR UNKNOWN INDICATION
     Dosage: 80 MILLIGRAM
     Route: 065
  18. XYREM [Suspect]
     Active Substance: SODIUM OXYBATE
     Dosage: 3.25 MILLIGRAM
     Route: 048
  19. XYREM [Suspect]
     Active Substance: SODIUM OXYBATE
     Dosage: 3.75 GRAM
     Route: 048
  20. XYREM [Suspect]
     Active Substance: SODIUM OXYBATE
     Dosage: 3 MILLIGRAM
     Route: 048
  21. XYREM [Suspect]
     Active Substance: SODIUM OXYBATE
     Dosage: 3.25 GRAM
     Route: 048
  22. ATORVASTATIN [Concomitant]
     Active Substance: ATORVASTATIN
     Indication: PRODUCT USED FOR UNKNOWN INDICATION
     Dosage: 40 MILLIGRAM
     Route: 065
  23. ERGOCALCIFEROL. [Concomitant]
     Active Substance: ERGOCALCIFEROL
     Indication: PRODUCT USED FOR UNKNOWN INDICATION
     Dosage: 1000 INTERNATIONAL UNIT
     Route: 065

REACTIONS (8)
  - Dementia Alzheimer^s type [Not Recovered/Not Resolved]
  - Product dose omission issue [Recovered/Resolved]
  - Behaviour disorder [Not Recovered/Not Resolved]
  - Cerebrovascular accident [Not Recovered/Not Resolved]
  - Treatment noncompliance [Recovered/Resolved]
  - Delirium [Not Recovered/Not Resolved]
  - Speech disorder [Recovered/Resolved]
  - Cataplexy [Recovered/Resolved]
